FAERS Safety Report 6726582-2 (Version None)
Quarter: 2010Q2

REPORT INFORMATION
  Report Type: 
  Country: None (occurrence: None)
  Receive Date: 20100514
  Receipt Date: 20100503
  Transmission Date: 20101027
  Serious: Yes (Hospitalization)
  Sender: FDA-Public Use
  Company Number: US-ELI_LILLY_AND_COMPANY-US201005000756

PATIENT

DRUGS (3)
  1. STRATTERA [Suspect]
  2. CELEBREX [Concomitant]
  3. ZOLOFT [Concomitant]

REACTIONS (2)
  - DERMATITIS EXFOLIATIVE [None]
  - JAUNDICE [None]
